FAERS Safety Report 4830051-4 (Version None)
Quarter: 2005Q4

REPORT INFORMATION
  Report Type: 
  Country: None (occurrence: None)
  Receive Date: 20051115
  Receipt Date: 20051115
  Transmission Date: 20060501
  Serious: Yes (Other)
  Sender: FDA-Public Use
  Company Number: None

PATIENT
  Sex: Female
  Weight: 65.7716 kg

DRUGS (2)
  1. ULTRAM [Suspect]
     Indication: HEADACHE
     Dosage: 2 PO Q 4 H PRN PAIN
     Dates: start: 20020821, end: 20030618
  2. ULTRAM [Suspect]
     Indication: NECK PAIN
     Dosage: 2 PO Q 4 H PRN PAIN
     Dates: start: 20020821, end: 20030618

REACTIONS (7)
  - CONVULSION [None]
  - DRUG HYPERSENSITIVITY [None]
  - FEELING JITTERY [None]
  - FRUSTRATION [None]
  - PRURITUS [None]
  - THERAPY NON-RESPONDER [None]
  - TREMOR [None]
